FAERS Safety Report 7423739-2 (Version None)
Quarter: 2011Q2

REPORT INFORMATION
  Report Type: 
  Country: None (occurrence: None)
  Receive Date: 20110407
  Receipt Date: 20110322
  Transmission Date: 20111010
  Serious: Yes (Hospitalization, Other)
  Sender: FDA-Public Use
  Company Number: 2009S1002278

PATIENT
  Age: 59 Year
  Sex: Male
  Weight: 76.6125 kg

DRUGS (14)
  1. REMICADE [Concomitant]
  2. AMBIEN [Concomitant]
  3. DIOVAN HCT [Concomitant]
  4. CRESTOR [Concomitant]
  5. LEVITRA [Concomitant]
  6. ACIPHEX [Concomitant]
  7. CLONIDINE [Concomitant]
  8. NORCO [Concomitant]
  9. FERROUS SULFATE TAB [Concomitant]
  10. VIT B12 [Suspect]
  11. ATENOLOL [Concomitant]
  12. PHOSPHO SODA [Suspect]
     Indication: ENDOSCOPY
  13. PHOSPHO SODA [Suspect]
     Indication: COLONOSCOPY
  14. HYDROCHLOROTHIAZDE TAB [Concomitant]

REACTIONS (6)
  - TOXICITY TO VARIOUS AGENTS [None]
  - WEIGHT DECREASED [None]
  - HYPERPHOSPHATAEMIA [None]
  - RENAL FAILURE ACUTE [None]
  - ANAEMIA [None]
  - INFLUENZA LIKE ILLNESS [None]
